FAERS Safety Report 5347107-2 (Version None)
Quarter: 2007Q2

REPORT INFORMATION
  Report Type: 
  Country: None (occurrence: None)
  Receive Date: 20070604
  Receipt Date: 20070524
  Transmission Date: 20071010
  Serious: Yes (Hospitalization, Other)
  Sender: FDA-Public Use
  Company Number: 2007SP003404

PATIENT
  Age: 39 Year
  Sex: Male
  Weight: 129 kg

DRUGS (14)
  1. PEG-INTRON [Suspect]
     Indication: HEPATITIS C
     Dosage: 90 MCG; QW; SC
     Route: 058
     Dates: start: 20070126, end: 20070205
  2. RIBAVIRIN [Suspect]
     Indication: HEPATITIS C
     Dosage: 400 MG; BID; PO
     Route: 048
     Dates: start: 20070126, end: 20070202
  3. DEMADEX [Concomitant]
  4. PROGRAF [Concomitant]
  5. PREDNISONE TAB [Concomitant]
  6. NEXIUM [Concomitant]
  7. PREVACID [Concomitant]
  8. ZYPREXA [Concomitant]
  9. ALDACTONE [Concomitant]
  10. VALCYTE [Concomitant]
  11. NEURONTIN [Concomitant]
  12. ATENOLOL [Concomitant]
  13. MULTI-VITAMIN [Concomitant]
  14. PERCOCET [Concomitant]

REACTIONS (4)
  - ASCITES [None]
  - DYSPNOEA [None]
  - PLEURAL EFFUSION [None]
  - RENAL FAILURE [None]
